FAERS Safety Report 13404964 (Version 1)
Quarter: 2017Q2

REPORT INFORMATION
  Report Type: Spontaneous
  Country: US (occurrence: US)
  Receive Date: 20170405
  Receipt Date: 20170405
  Transmission Date: 20170830
  Serious: No
  Sender: FDA-Public Use
  Company Number: None

PATIENT
  Age: 58 Year
  Sex: Female
  Weight: 70.76 kg

DRUGS (2)
  1. ATORVASTATIN [Suspect]
     Active Substance: ATORVASTATIN
  2. PRAVASTATIN. [Suspect]
     Active Substance: PRAVASTATIN
     Indication: BLOOD CHOLESTEROL INCREASED
     Dosage: QUANITY - HALF PILL EACH NIGHT
     Route: 048

REACTIONS (4)
  - Arthralgia [None]
  - Pain [None]
  - Myalgia [None]
  - Movement disorder [None]

NARRATIVE: CASE EVENT DATE: 20170217
